FAERS Safety Report 8208383-1 (Version None)
Quarter: 2012Q1

REPORT INFORMATION
  Report Type: 
  Country: None (occurrence: None)
  Receive Date: 20120314
  Receipt Date: 20120307
  Transmission Date: 20120608
  Serious: Yes (Other)
  Sender: FDA-Public Use
  Company Number: US-ABBOTT-12P-163-0900721-00

PATIENT
  Sex: Female
  Weight: 93.07 kg

DRUGS (11)
  1. HUMIRA [Suspect]
     Indication: RHEUMATOID ARTHRITIS
     Dates: start: 20110616, end: 20120102
  2. DIVAN [Concomitant]
     Indication: HYPERTENSION
  3. CYMBALTA [Concomitant]
     Dosage: DAILY DOSE: 100MG
  4. FOLIC ACID [Concomitant]
     Indication: PRODUCT USED FOR UNKNOWN INDICATION
  5. STEROID [Concomitant]
     Indication: PRODUCT USED FOR UNKNOWN INDICATION
     Dosage: HAS MONTHLY SHOT IN THE BACK
  6. GABAPENTIN [Concomitant]
     Indication: FIBROMYALGIA
  7. METHOTREXATE [Concomitant]
     Indication: PRODUCT USED FOR UNKNOWN INDICATION
     Dosage: WEEKLY DOSE: 8 PILLS
  8. PRAVASTATIN [Concomitant]
     Indication: BLOOD CHOLESTEROL INCREASED
  9. CYMBALTA [Concomitant]
     Indication: DEPRESSION
     Dosage: DAILY DOSE: 50MG
  10. MORPHINE [Concomitant]
     Indication: BACK PAIN
     Dosage: PATCH WEEKLY
  11. LEVOTHYROXINE SODIUM [Concomitant]
     Indication: HYPOTHYROIDISM

REACTIONS (10)
  - HERNIA [None]
  - NECK PAIN [None]
  - MENSTRUAL DISORDER [None]
  - DEPRESSION [None]
  - DRUG INEFFECTIVE [None]
  - PAIN [None]
  - GASTROOESOPHAGEAL REFLUX DISEASE [None]
  - INSOMNIA [None]
  - ARTHRALGIA [None]
  - VISUAL ACUITY REDUCED [None]
